FAERS Safety Report 18052232 (Version 1)
Quarter: 2020Q3

REPORT INFORMATION
  Report Type: Spontaneous
  Country: NP (occurrence: NP)
  Receive Date: 20200722
  Receipt Date: 20200722
  Transmission Date: 20201103
  Serious: Yes (Hospitalization, Other)
  Sender: FDA-Public Use
  Company Number: NP-NOVAST LABORATORIES LTD.-2020NOV000282

PATIENT
  Age: 33 Year
  Sex: Male

DRUGS (1)
  1. ACETAZOLAMIDE. [Suspect]
     Active Substance: ACETAZOLAMIDE
     Indication: HYPOBARISM
     Dosage: 8 TABLETS OF 250 MILLIGRAM EACH, OVER 24 HOURS
     Route: 048

REACTIONS (3)
  - Overdose [Unknown]
  - Shock [Recovered/Resolved]
  - Diabetic ketoacidosis [Recovered/Resolved]
